FAERS Safety Report 5698322-X (Version None)
Quarter: 2008Q2

REPORT INFORMATION
  Report Type: 
  Country: None (occurrence: None)
  Receive Date: 20080408
  Receipt Date: 20080311
  Transmission Date: 20081010
  Serious: No
  Sender: FDA-Public Use
  Company Number: US-BOEHRINGER INGELHEIM GMBH, GERMANY-2008-BP-02764BP

PATIENT
  Age: 82 Year
  Sex: Male

DRUGS (4)
  1. ZANTAC 150 [Suspect]
     Indication: DYSPEPSIA
     Route: 048
     Dates: start: 20080205, end: 20080225
  2. ZANTAC 150 [Suspect]
  3. ZANTAC 150 [Suspect]
     Indication: GASTROOESOPHAGEAL REFLUX DISEASE
  4. TERAZOSIN HYDROCHLORIDE [Concomitant]

REACTIONS (1)
  - DIARRHOEA [None]
